FAERS Safety Report 25946525 (Version 1)
Quarter: 2025Q4

REPORT INFORMATION
  Report Type: Spontaneous
  Country: AR (occurrence: AR)
  Receive Date: 20251022
  Receipt Date: 20251022
  Transmission Date: 20260117
  Serious: Yes (Hospitalization, Other)
  Sender: CELLTRION
  Company Number: AR-CELLTRION INC.-2025AR037890

PATIENT

DRUGS (1)
  1. RITUXIMAB [Suspect]
     Active Substance: RITUXIMAB
     Indication: Systemic lupus erythematosus

REACTIONS (5)
  - Aphasia [Unknown]
  - Dyskinesia [Unknown]
  - Dyskinesia [Unknown]
  - Hallucination, auditory [Unknown]
  - Intentional product use issue [Unknown]
